FAERS Safety Report 17163305 (Version 1)
Quarter: 2019Q4

REPORT INFORMATION
  Report Type: Spontaneous
  Country: US (occurrence: US)
  Receive Date: 20191124
  Receipt Date: 20191124
  Transmission Date: 20200122
  Serious: No
  Sender: FDA-Public Use
  Company Number: None

PATIENT
  Age: 68 Year
  Sex: Male
  Weight: 78.47 kg

DRUGS (2)
  1. TRIAMCINOLONE [Suspect]
     Active Substance: TRIAMCINOLONE
     Indication: PAIN
     Dates: start: 20190910, end: 20190910
  2. LIDOCAINE. [Suspect]
     Active Substance: LIDOCAINE
     Indication: PAIN
     Dates: start: 20190910, end: 20190910

REACTIONS (5)
  - Paraesthesia [None]
  - Angioedema [None]
  - Urticaria [None]
  - Pruritus [None]
  - Paraesthesia oral [None]

NARRATIVE: CASE EVENT DATE: 20190910
